FAERS Safety Report 21262179 (Version 1)
Quarter: 2022Q3

REPORT INFORMATION
  Report Type: Spontaneous
  Country: US (occurrence: US)
  Receive Date: 20220827
  Receipt Date: 20220827
  Transmission Date: 20221027
  Serious: No
  Sender: FDA-Public Use
  Company Number: US-ELI_LILLY_AND_COMPANY-US202208009587

PATIENT
  Sex: Male

DRUGS (4)
  1. BASAGLAR [Suspect]
     Active Substance: INSULIN GLARGINE
     Indication: Type 2 diabetes mellitus
     Dosage: 19 U, EACH MORNING
     Route: 065
     Dates: start: 20220703
  2. BASAGLAR [Suspect]
     Active Substance: INSULIN GLARGINE
     Indication: Type 2 diabetes mellitus
     Dosage: 19 U, EACH MORNING
     Route: 065
     Dates: start: 20220703
  3. BASAGLAR [Suspect]
     Active Substance: INSULIN GLARGINE
     Dosage: 19 U, EACH MORNING
     Route: 065
  4. BASAGLAR [Suspect]
     Active Substance: INSULIN GLARGINE
     Dosage: 19 U, EACH MORNING
     Route: 065

REACTIONS (1)
  - Blood glucose fluctuation [Unknown]
